FAERS Safety Report 4441403-9 (Version None)
Quarter: 2004Q3

REPORT INFORMATION
  Report Type: 
  Country: None (occurrence: None)
  Receive Date: 20040728
  Receipt Date: 20040220
  Transmission Date: 20050211
  Serious: No
  Sender: FDA-Public Use
  Company Number: USA040259942

PATIENT
  Age: 10 Year
  Sex: Male

DRUGS (1)
  1. STRATTERA [Suspect]
     Dosage: 25 MG DAY
     Dates: end: 20040213

REACTIONS (1)
  - TIC [None]
